FAERS Safety Report 10667416 (Version 1)
Quarter: 2014Q4

REPORT INFORMATION
  Report Type: Spontaneous
  Country: IR (occurrence: IR)
  Receive Date: 20141222
  Receipt Date: 20141222
  Transmission Date: 20150529
  Serious: Yes (Other)
  Sender: FDA-Public Use
  Company Number: PHHY2014IR163554

PATIENT
  Age: 75 Year
  Sex: Female

DRUGS (2)
  1. DIGOXIN. [Suspect]
     Active Substance: DIGOXIN
     Indication: RIGHT VENTRICULAR FAILURE
     Dosage: 0.25 MG, QD
     Route: 065
  2. ERYTHROMYCIN. [Interacting]
     Active Substance: ERYTHROMYCIN
     Indication: GASTRIC HYPOMOTILITY
     Dosage: 500 MG, EVERY 6 HOUR
     Route: 042

REACTIONS (7)
  - Hyperkalaemia [Not Recovered/Not Resolved]
  - Drug interaction [Unknown]
  - Toxicity to various agents [Recovering/Resolving]
  - Nausea [Recovering/Resolving]
  - Diarrhoea [Recovering/Resolving]
  - Atrial fibrillation [Recovering/Resolving]
  - Bradycardia [Recovering/Resolving]
